FAERS Safety Report 8287839-X (Version None)
Quarter: 2012Q2

REPORT INFORMATION
  Report Type: 
  Country: None (occurrence: None)
  Receive Date: 20120416
  Receipt Date: 20120410
  Transmission Date: 20120825
  Serious: Yes (Life-Threatening, Hospitalization)
  Sender: FDA-Public Use
  Company Number: BR-ASTRAZENECA-2012SE23593

PATIENT
  Age: 55 Year
  Sex: Male
  Weight: 73 kg

DRUGS (6)
  1. DIVELOL [Concomitant]
  2. ASPIRIN [Concomitant]
  3. BRILINTA [Suspect]
     Indication: INFARCTION
     Route: 048
     Dates: start: 20120301
  4. ATACAND HCT [Suspect]
     Indication: HYPERTENSION
     Dosage: 16/12.5 MG, DAILY
     Route: 048
     Dates: end: 20120306
  5. OMEPRAZOLE [Concomitant]
     Indication: GASTRITIS PROPHYLAXIS
     Route: 065
  6. ISOSORBIDE MONONITRATE [Concomitant]

REACTIONS (3)
  - MYOCARDIAL INFARCTION [None]
  - CARDIAC ARREST [None]
  - DRUG PRESCRIBING ERROR [None]
